FAERS Safety Report 21807257 (Version 2)
Quarter: 2023Q1

REPORT INFORMATION
  Report Type: Report from Study
  Country: US (occurrence: US)
  Receive Date: 20230102
  Receipt Date: 20230303
  Transmission Date: 20230418
  Serious: Yes (Other)
  Sender: FDA-Public Use
  Company Number: US-ABBVIE-4223562

PATIENT
  Sex: Female
  Weight: 58 kg

DRUGS (1)
  1. HUMIRA [Suspect]
     Active Substance: ADALIMUMAB
     Indication: Rheumatoid arthritis
     Route: 058

REACTIONS (8)
  - Surgery [Unknown]
  - Fatigue [Unknown]
  - Balance disorder [Unknown]
  - Endodontic procedure [Unknown]
  - Pain [Unknown]
  - Balance disorder [Recovered/Resolved]
  - Feeling abnormal [Unknown]
  - Vitamin B12 abnormal [Unknown]

NARRATIVE: CASE EVENT DATE: 20220101
